FAERS Safety Report 25534581 (Version 1)
Quarter: 2025Q3

REPORT INFORMATION
  Report Type: Spontaneous
  Country: US (occurrence: US)
  Receive Date: 20250709
  Receipt Date: 20250709
  Transmission Date: 20251021
  Serious: No
  Sender: ABBVIE
  Company Number: US-ABBVIE-6360703

PATIENT
  Age: 73 Year
  Sex: Female

DRUGS (1)
  1. ARMOUR THYROID [Suspect]
     Active Substance: THYROID, PORCINE
     Indication: Product used for unknown indication
     Route: 048
     Dates: start: 202502

REACTIONS (5)
  - Abdominal distension [Unknown]
  - Abdominal distension [Unknown]
  - Dysstasia [Unknown]
  - Joint swelling [Unknown]
  - Muscle swelling [Unknown]

NARRATIVE: CASE EVENT DATE: 20250101
